FAERS Safety Report 6389750-8 (Version None)
Quarter: 2009Q4

REPORT INFORMATION
  Report Type: 
  Country: None (occurrence: None)
  Receive Date: 20091006
  Receipt Date: 20090928
  Transmission Date: 20100525
  Serious: Yes (Hospitalization)
  Sender: FDA-Public Use
  Company Number: US-ELI_LILLY_AND_COMPANY-US200909006669

PATIENT
  Age: 76 Year
  Sex: Female

DRUGS (5)
  1. GEMZAR [Suspect]
     Indication: OVARIAN CANCER RECURRENT
     Dosage: 800 MG/M2, EVERY 21 DAYS
     Dates: start: 20090629
  2. CARBOPLATIN [Concomitant]
     Indication: OVARIAN CANCER RECURRENT
     Dosage: AUC 4
     Dates: start: 20090629
  3. COUMADIN [Concomitant]
  4. NEURONTIN [Concomitant]
  5. SYNTHROID [Concomitant]

REACTIONS (2)
  - INTESTINAL FUNCTIONAL DISORDER [None]
  - RENAL FAILURE [None]
